FAERS Safety Report 5999188-0 (Version None)
Quarter: 2008Q4

REPORT INFORMATION
  Report Type: 
  Country: None (occurrence: None)
  Receive Date: 20081211
  Receipt Date: 20081203
  Transmission Date: 20090506
  Serious: Yes (Life-Threatening)
  Sender: FDA-Public Use
  Company Number: APP200801194

PATIENT

DRUGS (6)
  1. HEPARIN SODIUM INJECTION [Suspect]
     Indication: ANTICOAGULANT THERAPY
     Dosage: ER, 2000 USP UNITS, 0832 IN CATH LAB, INTRAVENOUS BOLUS, 1000 USP UNITS, 0922 IN CATH LAB, INTRAVENO
     Route: 040
     Dates: start: 20081130
  2. HEPARIN SODIUM INJECTION [Suspect]
     Indication: ANTICOAGULANT THERAPY
     Dosage: ER, 2000 USP UNITS, 0832 IN CATH LAB, INTRAVENOUS BOLUS, 1000 USP UNITS, 0922 IN CATH LAB, INTRAVENO
     Route: 040
     Dates: start: 20081130
  3. HEPARIN SODIUM INJECTION [Suspect]
     Indication: ANTICOAGULANT THERAPY
     Dosage: ER, 2000 USP UNITS, 0832 IN CATH LAB, INTRAVENOUS BOLUS, 1000 USP UNITS, 0922 IN CATH LAB, INTRAVENO
     Route: 040
     Dates: start: 20081130
  4. HEPARIN SODIUM INJECTION [Suspect]
  5. HEPARIN SODIUM INJECTION [Suspect]
  6. ISOVUE-370 [Suspect]
     Indication: CATHETERISATION CARDIAC
     Dosage: IN CARDIAC CATHETERIZATION LAB
     Dates: start: 20081130

REACTIONS (5)
  - AGITATION [None]
  - ANGIOEDEMA [None]
  - CARDIOGENIC SHOCK [None]
  - DRUG HYPERSENSITIVITY [None]
  - RESPIRATORY DISTRESS [None]
